FAERS Safety Report 8840262 (Version 1)
Quarter: 2012Q4

REPORT INFORMATION
  Report Type: 
  Country: CH (occurrence: CH)
  Receive Date: 20121015
  Receipt Date: 20121015
  Transmission Date: 20130627
  Serious: Yes (Life-Threatening, Hospitalization)
  Sender: FDA-Public Use
  Company Number: CH-GLAXOSMITHKLINE-B0837551A

PATIENT
  Age: 47 Year
  Sex: Male
  Weight: 108 kg

DRUGS (13)
  1. ZOFRAN [Suspect]
     Indication: VOMITING
     Dosage: 4MG Three times per day
     Route: 048
     Dates: end: 20120814
  2. CIPROXIN [Suspect]
     Indication: BACTERIAL INFECTION
     Dosage: 750MG Twice per day
     Route: 048
     Dates: start: 20120713, end: 20120814
  3. BELOC [Concomitant]
     Dosage: 50MG Per day
     Route: 048
  4. EPROSARTAN MESILATE [Concomitant]
     Dosage: 600MG Per day
     Route: 048
  5. PANTOZOL [Concomitant]
     Dosage: 40MG Twenty four times per day
     Route: 048
  6. DAFALGAN [Concomitant]
     Dosage: 1G Four times per day
     Route: 048
  7. DOSPIR [Concomitant]
     Route: 055
  8. PERENTEROL [Concomitant]
     Route: 048
  9. PARAGOL [Concomitant]
     Route: 048
  10. FLAGYL [Concomitant]
     Dosage: 500MG Three times per day
     Route: 048
     Dates: start: 20120804
  11. AMIKIN [Concomitant]
     Route: 042
     Dates: start: 20120808
  12. TIENAM [Concomitant]
     Dosage: 500MG Four times per day
     Route: 042
     Dates: start: 20120705
  13. FRAGMIN [Concomitant]
     Route: 042

REACTIONS (6)
  - Electrocardiogram QT prolonged [Recovered/Resolved]
  - Cardiac fibrillation [Recovered/Resolved]
  - Loss of consciousness [Recovered/Resolved]
  - Malaise [Recovered/Resolved]
  - Tachycardia [Recovered/Resolved]
  - Hypotonic-hyporesponsive episode [Recovered/Resolved]
